FAERS Safety Report 17143633 (Version 8)
Quarter: 2021Q1

REPORT INFORMATION
  Report Type: Spontaneous
  Country: US (occurrence: US)
  Receive Date: 20191212
  Receipt Date: 20210121
  Transmission Date: 20210419
  Serious: Yes (Other)
  Sender: FDA-Public Use
  Company Number: US-PFIZER INC-2019131892

PATIENT
  Age: 77 Year
  Sex: Male

DRUGS (9)
  1. NORPACE [Suspect]
     Active Substance: DISOPYRAMIDE PHOSPHATE
     Indication: ESSENTIAL HYPERTENSION
     Dosage: 150 MG, 2X/DAY (TAKE ONE CAPSULE BY MOUTH EVERY 12 HOURS)
     Route: 048
     Dates: start: 20190319
  2. ATORVASTATIN [Concomitant]
     Active Substance: ATORVASTATIN
     Indication: BLOOD CHOLESTEROL ABNORMAL
     Dosage: 20 MG, DAILY
  3. NORPACE [Suspect]
     Active Substance: DISOPYRAMIDE PHOSPHATE
     Dosage: 150 MG, 2X/DAY
     Route: 048
     Dates: start: 20210113
  4. NORPACE [Suspect]
     Active Substance: DISOPYRAMIDE PHOSPHATE
     Indication: CARDIAC DISORDER
     Dosage: 150 MG, 2X/DAY
     Route: 048
  5. METOPROLOL [METOPROLOL SUCCINATE] [Concomitant]
     Indication: BLOOD PRESSURE ABNORMAL
     Dosage: 50 MG
  6. FUROSEMIDE. [Concomitant]
     Active Substance: FUROSEMIDE
     Dosage: 20 MG, DAILY
  7. CITALOPRAM [Concomitant]
     Active Substance: CITALOPRAM HYDROBROMIDE
     Indication: DEPRESSION
     Dosage: 10 MG, DAILY
  8. CLONIDINE. [Concomitant]
     Active Substance: CLONIDINE
     Dosage: 0.1 MG, 2X/DAY (WAS TAKING ONCE DAILY PRIOR TO STROKE. NOW TAKES TWICE DAILY)
  9. METOPROLOL [METOPROLOL SUCCINATE] [Concomitant]
     Indication: CARDIAC DISORDER

REACTIONS (4)
  - Off label use [Unknown]
  - Dry mouth [Unknown]
  - Confusional state [Unknown]
  - Cerebrovascular accident [Recovered/Resolved with Sequelae]

NARRATIVE: CASE EVENT DATE: 20190319
